FAERS Safety Report 24070272 (Version 1)
Quarter: 2024Q3

REPORT INFORMATION
  Report Type: Spontaneous
  Country: US (occurrence: None)
  Receive Date: 20240709
  Receipt Date: 20240709
  Transmission Date: 20241016
  Serious: Yes (Death)
  Sender: Public
  Company Number: None

PATIENT
  Age: 57 Year
  Sex: Male

DRUGS (2)
  1. BARACLUDE [Suspect]
     Active Substance: ENTECAVIR
     Indication: Immune thrombocytopenia
     Dosage: 1MG DAILY ORAL
     Route: 048
     Dates: start: 201412, end: 20240703
  2. DOPTELET [Concomitant]
     Active Substance: AVATROMBOPAG MALEATE

REACTIONS (1)
  - Death [None]

NARRATIVE: CASE EVENT DATE: 20240703
